FAERS Safety Report 5102904-3 (Version None)
Quarter: 2006Q3

REPORT INFORMATION
  Report Type: 
  Country: None (occurrence: None)
  Receive Date: 20060907
  Receipt Date: 20060821
  Transmission Date: 20061208
  Serious: Yes (Hospitalization)
  Sender: FDA-Public Use
  Company Number: 2006RR-03590

PATIENT
  Age: 20 Month
  Sex: Male
  Weight: 12.8 kg

DRUGS (4)
  1. IBUPROFEN [Suspect]
     Indication: PAIN
     Dosage: 50 MG ORAL
     Route: 048
     Dates: start: 20060727, end: 20060730
  2. BENZYLPENICILLIN [Concomitant]
  3. FLUCLOXACILLIN [Concomitant]
  4. PARACETAMOL [Concomitant]

REACTIONS (1)
  - ACUTE PRERENAL FAILURE [None]
